FAERS Safety Report 5835963-0 (Version None)
Quarter: 2008Q3

REPORT INFORMATION
  Report Type: 
  Country: None (occurrence: None)
  Receive Date: 20080806
  Receipt Date: 20080728
  Transmission Date: 20090109
  Serious: Yes (Other)
  Sender: FDA-Public Use
  Company Number: GR-PFIZER INC-2008041736

PATIENT
  Age: 73 Year
  Sex: Male
  Weight: 60 kg

DRUGS (1)
  1. VIBRAMYCIN [Suspect]
     Indication: BRUCELLOSIS
     Route: 048
     Dates: start: 20080327, end: 20080403

REACTIONS (1)
  - HEPATITIS ACUTE [None]
